FAERS Safety Report 24790020 (Version 4)
Quarter: 2025Q3

REPORT INFORMATION
  Report Type: Spontaneous
  Country: US (occurrence: US)
  Receive Date: 20241230
  Receipt Date: 20250919
  Transmission Date: 20251020
  Serious: Yes (Other)
  Sender: SANDOZ
  Company Number: US-SANDOZ-SDZ2024US105929

PATIENT
  Age: 74 Year
  Sex: Male

DRUGS (6)
  1. OMNITROPE [Suspect]
     Active Substance: SOMATROPIN
     Dosage: 5 MG, QD , STRENGTH( 5MG/1.5ML)
     Route: 058
     Dates: start: 20250905
  2. OMNITROPE [Suspect]
     Active Substance: SOMATROPIN
     Dosage: 5 MG, QD , STRENGTH( 5MG/1.5ML)
     Route: 058
     Dates: start: 20250905
  3. OMNITROPE [Suspect]
     Active Substance: SOMATROPIN
     Dosage: 5 MG, QD, (5MG/1.5ML)
     Route: 058
     Dates: start: 20231227
  4. OMNITROPE [Suspect]
     Active Substance: SOMATROPIN
     Dosage: 5 MG, QD, (5MG/1.5ML)
     Route: 058
     Dates: start: 20231227
  5. OMNITROPE [Suspect]
     Active Substance: SOMATROPIN
     Indication: Hypopituitarism
     Dosage: 0.5 MG, QD
     Route: 058
     Dates: start: 20231227
  6. OMNITROPE [Suspect]
     Active Substance: SOMATROPIN
     Indication: Hypopituitarism
     Dosage: 0.5 MG, QD
     Route: 058
     Dates: start: 20231227

REACTIONS (12)
  - Pulmonary fibrosis [Unknown]
  - Gallbladder operation [Recovering/Resolving]
  - Sciatica [Unknown]
  - Liver disorder [Unknown]
  - Tumour marker abnormal [Unknown]
  - Stress [Recovered/Resolved]
  - Musculoskeletal stiffness [Unknown]
  - Circumstance or information capable of leading to device use error [Unknown]
  - Incorrect dose administered by device [Unknown]
  - Device delivery system issue [Unknown]
  - Device breakage [Unknown]
  - Device issue [Unknown]

NARRATIVE: CASE EVENT DATE: 20250829
